FAERS Safety Report 4906350-4 (Version None)
Quarter: 2006Q1

REPORT INFORMATION
  Report Type: 
  Country: None (occurrence: None)
  Receive Date: 20060209
  Receipt Date: 20060130
  Transmission Date: 20060701
  Serious: Yes (Hospitalization)
  Sender: FDA-Public Use
  Company Number: NZ-JNJFOC-20060105905

PATIENT
  Age: 2 Year
  Sex: Female

DRUGS (1)
  1. RISPERDAL [Suspect]
     Indication: DRUG DISPENSING ERROR
     Route: 048
     Dates: start: 20060101, end: 20060101

REACTIONS (6)
  - DRUG DISPENSING ERROR [None]
  - EYE ROLLING [None]
  - HYPOTONIA [None]
  - OVERDOSE [None]
  - SOMNOLENCE [None]
  - TACHYCARDIA [None]
